FAERS Safety Report 6016932-7 (Version None)
Quarter: 2008Q4

REPORT INFORMATION
  Report Type: 
  Country: None (occurrence: None)
  Receive Date: 20081218
  Receipt Date: 20081204
  Transmission Date: 20090506
  Serious: Yes (Death, Life-Threatening, Other)
  Sender: FDA-Public Use
  Company Number: 2008-04286

PATIENT
  Age: 16 Year
  Sex: Female
  Weight: 70.8 kg

DRUGS (7)
  1. VELCADE [Suspect]
     Indication: ACUTE LYMPHOCYTIC LEUKAEMIA
     Dosage: 1.3 MG/M2, INTRAVENOUS
     Route: 042
     Dates: start: 20071023, end: 20071023
  2. VINCRISTINE [Suspect]
     Indication: ACUTE LYMPHOCYTIC LEUKAEMIA
     Dosage: 2 MG,INTRAVENOUS
     Route: 042
     Dates: start: 20071023, end: 20071023
  3. METHOTREXATE [Suspect]
     Indication: ACUTE LYMPHOCYTIC LEUKAEMIA
     Dates: start: 20050101, end: 20070101
  4. DECADRON [Suspect]
     Indication: ACUTE LYMPHOCYTIC LEUKAEMIA
     Dosage: 9 MG, INTRAVENOUS
     Route: 042
     Dates: start: 20071023, end: 20071023
  5. DOXORUBICIN HCL [Suspect]
     Indication: ACUTE LYMPHOCYTIC LEUKAEMIA
     Dosage: 107 MG, INTRAVENOUS
     Route: 042
     Dates: start: 20071023, end: 20071023
  6. PEGASPARGASE [Suspect]
     Indication: ACUTE LYMPHOCYTIC LEUKAEMIA
     Dates: start: 20071025
  7. CYTARABINE [Suspect]
     Indication: ACUTE LYMPHOCYTIC LEUKAEMIA
     Dates: start: 20050101, end: 20071023

REACTIONS (31)
  - ABDOMINAL PAIN [None]
  - ANAPHYLACTIC REACTION [None]
  - BACTERAEMIA [None]
  - BLOOD CALCIUM ABNORMAL [None]
  - BONE PAIN [None]
  - CHILLS [None]
  - CULTURE TISSUE SPECIMEN POSITIVE [None]
  - DYSPNOEA [None]
  - HAEMOGLOBIN DECREASED [None]
  - HEPATIC FAILURE [None]
  - HEPATIC HAEMORRHAGE [None]
  - HEPATIC INFARCTION [None]
  - HEPATIC NECROSIS [None]
  - HYPERAMMONAEMIA [None]
  - HYPOKALAEMIA [None]
  - HYPOPHOSPHATAEMIA [None]
  - HYPOTENSION [None]
  - INCONTINENCE [None]
  - LOSS OF CONSCIOUSNESS [None]
  - LUNG INFILTRATION [None]
  - MALAISE [None]
  - MUCORMYCOSIS [None]
  - NAUSEA [None]
  - NEUTROPENIA [None]
  - PLATELET COUNT DECREASED [None]
  - PLEURAL EFFUSION [None]
  - PYREXIA [None]
  - RHABDOMYOLYSIS [None]
  - SHOCK [None]
  - SPLENIC INFARCTION [None]
  - VOMITING [None]
